FAERS Safety Report 7068028-3 (Version None)
Quarter: 2010Q4

REPORT INFORMATION
  Report Type: 
  Country: None (occurrence: None)
  Receive Date: 20101028
  Receipt Date: 20101016
  Transmission Date: 20110411
  Serious: Yes (Other)
  Sender: FDA-Public Use
  Company Number: US-AMGEN-KDL431568

PATIENT

DRUGS (2)
  1. ENBREL [Suspect]
     Indication: RHEUMATOID ARTHRITIS
     Dosage: 50 MG, QWK
     Route: 058
     Dates: start: 20100521
  2. ENBREL [Suspect]
     Dates: start: 20100520

REACTIONS (11)
  - BREAST MASS [None]
  - BREAST NECROSIS [None]
  - CELLULITIS [None]
  - FATIGUE [None]
  - HEADACHE [None]
  - HYPERHIDROSIS [None]
  - INJECTION SITE ERYTHEMA [None]
  - INJECTION SITE PAIN [None]
  - NODULE [None]
  - RASH PAPULAR [None]
  - VENOUS INSUFFICIENCY [None]
